FAERS Safety Report 14471747 (Version 1)
Quarter: 2018Q1

REPORT INFORMATION
  Report Type: Spontaneous
  Country: CA (occurrence: CA)
  Receive Date: 20180131
  Receipt Date: 20180131
  Transmission Date: 20180509
  Serious: Yes (Hospitalization, Other)
  Sender: FDA-Public Use
  Company Number: CA-ENDO PHARMACEUTICALS INC-2018-014381

PATIENT
  Age: 25 Year
  Sex: Male

DRUGS (2)
  1. LIOTHYRONINE [Suspect]
     Active Substance: LIOTHYRONINE
     Indication: PERFORMANCE ENHANCING PRODUCT USE
     Dosage: UNK UNKNOWN, UNKNOWN
     Route: 048
  2. DELATESTRYL [Suspect]
     Active Substance: TESTOSTERONE ENANTHATE
     Indication: PERFORMANCE ENHANCING PRODUCT USE
     Dosage: UNK UNKNOWN, UNKNOWN
     Route: 030

REACTIONS (6)
  - Hepatic neoplasm [Unknown]
  - Left ventricular hypertrophy [Unknown]
  - Intentional product misuse [Unknown]
  - Sinus tachycardia [Unknown]
  - Congestive cardiomyopathy [Unknown]
  - Systolic dysfunction [Unknown]
